FAERS Safety Report 25575006 (Version 1)
Quarter: 2025Q3

REPORT INFORMATION
  Report Type: Spontaneous
  Country: US (occurrence: US)
  Receive Date: 20250718
  Receipt Date: 20250718
  Transmission Date: 20251021
  Serious: Yes (Other)
  Sender: AMGEN
  Company Number: US-AMGEN-USASP2025134437

PATIENT
  Age: 7 Decade
  Sex: Male

DRUGS (5)
  1. PREDNISONE [Suspect]
     Active Substance: PREDNISONE
     Indication: Pyoderma gangrenosum
     Route: 065
  2. INFLIXIMAB [Suspect]
     Active Substance: INFLIXIMAB
     Indication: Pyoderma gangrenosum
     Dosage: 5 MILLIGRAM/KILOGRAM, Q6WK
     Route: 065
  3. DOXYCYCLINE [Concomitant]
     Active Substance: DOXYCYCLINE
  4. CLOBETASOL [Concomitant]
     Active Substance: CLOBETASOL
  5. DAPSONE [Concomitant]
     Active Substance: DAPSONE

REACTIONS (2)
  - Mucocutaneous leishmaniasis [Recovered/Resolved]
  - Off label use [Unknown]
